FAERS Safety Report 13268107 (Version 1)
Quarter: 2017Q1

REPORT INFORMATION
  Report Type: Spontaneous
  Country: US (occurrence: US)
  Receive Date: 20170224
  Receipt Date: 20170224
  Transmission Date: 20170428
  Serious: No
  Sender: FDA-Public Use
  Company Number: US-TEVA-721314ACC

PATIENT
  Age: 55 Year
  Sex: Female
  Weight: 65 kg

DRUGS (1)
  1. BUPRENORPHINE. [Suspect]
     Active Substance: BUPRENORPHINE
     Dates: start: 20161103

REACTIONS (3)
  - Vomiting [Unknown]
  - Nausea [Unknown]
  - Drug screen positive [Unknown]

NARRATIVE: CASE EVENT DATE: 20161106
